FAERS Safety Report 10004018 (Version 2)
Quarter: 2014Q1

REPORT INFORMATION
  Report Type: Spontaneous
  Country: US (occurrence: US)
  Receive Date: 20140312
  Receipt Date: 20140315
  Transmission Date: 20141002
  Serious: Yes (Other)
  Sender: FDA-Public Use
  Company Number: US-TEVA-468283USA

PATIENT
  Age: 39 Year
  Sex: Female
  Weight: 120.31 kg

DRUGS (4)
  1. PARAGARD 380A [Suspect]
     Indication: CONTRACEPTION
     Route: 015
     Dates: start: 20140308, end: 20140308
  2. LISINOPRIL [Concomitant]
     Indication: HYPERTENSION
  3. SERTRALINE [Concomitant]
     Indication: ANXIETY
  4. PRILOSEC [Concomitant]
     Indication: GASTROOESOPHAGEAL REFLUX DISEASE

REACTIONS (3)
  - Anaphylactic reaction [Recovered/Resolved]
  - Metrorrhagia [Not Recovered/Not Resolved]
  - Dizziness [Unknown]
